FAERS Safety Report 6839569-6 (Version None)
Quarter: 2010Q3

REPORT INFORMATION
  Report Type: 
  Country: None (occurrence: None)
  Receive Date: 20100714
  Receipt Date: 20100423
  Transmission Date: 20110219
  Serious: No
  Sender: FDA-Public Use
  Company Number: A0848884A

PATIENT
  Age: 59 Year
  Sex: Female

DRUGS (4)
  1. FLOVENT [Suspect]
     Indication: SARCOIDOSIS
     Dosage: 1PUFF TWICE PER DAY
     Route: 055
     Dates: start: 20091101
  2. PAROXETINE [Concomitant]
  3. WELLBUTRIN [Concomitant]
  4. OMEPRAZOLE [Concomitant]

REACTIONS (4)
  - COUGH [None]
  - FEELING ABNORMAL [None]
  - ILL-DEFINED DISORDER [None]
  - PRODUCT QUALITY ISSUE [None]
